FAERS Safety Report 6574302-7 (Version None)
Quarter: 2010Q1

REPORT INFORMATION
  Report Type: 
  Country: None (occurrence: None)
  Receive Date: 20100208
  Receipt Date: 20090610
  Transmission Date: 20100710
  Serious: Yes (Other)
  Sender: FDA-Public Use
  Company Number: SE-GENENTECH-297768

PATIENT
  Sex: Female

DRUGS (4)
  1. LUCENTIS [Suspect]
     Indication: MACULAR DEGENERATION
     Dosage: 10 MG/ML, UNK
     Route: 031
  2. LUCENTIS [Suspect]
     Dosage: 10 MG/ML, UNK
     Route: 031
     Dates: start: 20081212
  3. CYCLOGYL [Concomitant]
     Indication: DRUG USE FOR UNKNOWN INDICATION
  4. TETRACAINE HYDROCHLORIDE [Concomitant]
     Indication: DRUG USE FOR UNKNOWN INDICATION

REACTIONS (3)
  - ANGIOEDEMA [None]
  - EYE SWELLING [None]
  - URTICARIA [None]
